FAERS Safety Report 24744366 (Version 5)
Quarter: 2025Q1

REPORT INFORMATION
  Report Type: Spontaneous
  Country: GR (occurrence: GR)
  Receive Date: 20241217
  Receipt Date: 20250331
  Transmission Date: 20250408
  Serious: No
  Sender: PFIZER
  Company Number: GR-PFIZER INC-PV202400162030

PATIENT
  Age: 13 Year
  Sex: Male
  Weight: 47 kg

DRUGS (1)
  1. GENOTROPIN [Suspect]
     Active Substance: SOMATROPIN
     Indication: Growth hormone deficiency
     Dosage: 10 MG, WEEKLY (1.4MG X 6 DAYS + 1.6MG X 1 DAY / 7 DAYS (NO DAY OFF)
     Route: 058
     Dates: start: 202411

REACTIONS (1)
  - Device leakage [Unknown]

NARRATIVE: CASE EVENT DATE: 20241210
